FAERS Safety Report 11009020 (Version 1)
Quarter: 2015Q2

REPORT INFORMATION
  Report Type: Spontaneous
  Country: SE (occurrence: None)
  Receive Date: 20150408
  Receipt Date: 20150408
  Transmission Date: 20150821
  Serious: Yes (Hospitalization)
  Sender: FDA-Public Use
  Company Number: SE-001818

PATIENT
  Age: 53 Year
  Sex: Female

DRUGS (8)
  1. MIRTAZAPIN [Concomitant]
     Active Substance: MIRTAZAPINE
  2. AMINO ACIDS NOS W/ELECTROLYTES NOS//07406501 [Concomitant]
  3. REVESTIVE (REVESTIVE) 5 MG [Suspect]
     Active Substance: TEDUGLUTIDE
     Indication: SHORT-BOWEL SYNDROME
     Route: 058
     Dates: start: 20141216
  4. ESCITALOPRAM [Concomitant]
     Active Substance: ESCITALOPRAM OXALATE
  5. IMOVANE [Concomitant]
     Active Substance: ZOPICLONE
  6. MORPHINE [Concomitant]
     Active Substance: MORPHINE
  7. KODEINIJEV FOSFAT [Concomitant]
  8. IMODIUM [Concomitant]
     Active Substance: LOPERAMIDE HYDROCHLORIDE

REACTIONS (1)
  - Respiratory tract infection [None]

NARRATIVE: CASE EVENT DATE: 2015
